FAERS Safety Report 13640597 (Version 1)
Quarter: 2017Q2

REPORT INFORMATION
  Report Type: Spontaneous
  Country: US (occurrence: US)
  Receive Date: 20170609
  Receipt Date: 20170609
  Transmission Date: 20170830
  Serious: Yes (Hospitalization)
  Sender: FDA-Public Use
  Company Number: None

PATIENT
  Age: 64 Year
  Sex: Male
  Weight: 74.5 kg

DRUGS (1)
  1. MEMANTINE HYDROCHLORIDE. [Suspect]
     Active Substance: MEMANTINE HYDROCHLORIDE
     Dates: end: 20170306

REACTIONS (7)
  - Disorientation [None]
  - Failure to thrive [None]
  - Dizziness [None]
  - Dyspnoea [None]
  - Fatigue [None]
  - Lacrimation increased [None]
  - Asthenia [None]

NARRATIVE: CASE EVENT DATE: 20170306
